FAERS Safety Report 13341027 (Version 1)
Quarter: 2017Q1

REPORT INFORMATION
  Report Type: Spontaneous
  Country: US (occurrence: US)
  Receive Date: 20170315
  Receipt Date: 20170315
  Transmission Date: 20170428
  Serious: No
  Sender: FDA-Public Use
  Company Number: None

PATIENT
  Age: 57 Year
  Sex: Female

DRUGS (1)
  1. CAPECITABINE TAB 150MG [Suspect]
     Active Substance: CAPECITABINE
     Dosage: 3300 MG BID FRO 14 DAYS ORAL
     Route: 048
     Dates: start: 20161122

REACTIONS (1)
  - Blood pressure increased [None]

NARRATIVE: CASE EVENT DATE: 20170310
